FAERS Safety Report 8439620-6 (Version None)
Quarter: 2012Q2

REPORT INFORMATION
  Report Type: 
  Country: None (occurrence: None)
  Receive Date: 20120615
  Receipt Date: 20110527
  Transmission Date: 20120825
  Serious: Yes (Other)
  Sender: FDA-Public Use
  Company Number: US-ASTRAZENECA-2009SE27189

PATIENT
  Age: 77 Year
  Sex: Male

DRUGS (2)
  1. SEROQUEL [Suspect]
     Indication: DEPRESSION
     Route: 048
     Dates: start: 20100101
  2. ACIPHEX [Concomitant]

REACTIONS (8)
  - SURGERY [None]
  - INSOMNIA [None]
  - FEELING ABNORMAL [None]
  - BACK PAIN [None]
  - THERAPEUTIC RESPONSE UNEXPECTED [None]
  - SUICIDAL IDEATION [None]
  - DRUG DOSE OMISSION [None]
  - ANXIETY [None]
